FAERS Safety Report 5133911-2 (Version None)
Quarter: 2006Q4

REPORT INFORMATION
  Report Type: 
  Country: None (occurrence: None)
  Receive Date: 20061018
  Receipt Date: 20060407
  Transmission Date: 20070319
  Serious: Yes (Death, Hospitalization, Other)
  Sender: FDA-Public Use
  Company Number: 2006BH007502

PATIENT
  Age: 73 Year
  Sex: Female
  Weight: 108.8633 kg

DRUGS (8)
  1. DIANEAL [Suspect]
     Indication: RENAL FAILURE CHRONIC
     Dosage: 10 L; EVERY DAY; IP
     Route: 033
     Dates: start: 20040101
  2. LOPRESSOR [Concomitant]
  3. HUMULIN 70/30 [Concomitant]
  4. ASPIRIN [Concomitant]
  5. ROCALTROL [Concomitant]
  6. IMDUR [Concomitant]
  7. HEPARIN [Concomitant]
  8. PROTONIX [Concomitant]

REACTIONS (26)
  - CARDIAC ARREST [None]
  - CARDIAC FAILURE CONGESTIVE [None]
  - CATHETER RELATED INFECTION [None]
  - CEREBRAL INFARCTION [None]
  - CORONARY ARTERY DISEASE [None]
  - CULTURE POSITIVE [None]
  - DIABETIC RETINOPATHY [None]
  - DILATATION VENTRICULAR [None]
  - DYSLIPIDAEMIA [None]
  - ELECTROCARDIOGRAM ST SEGMENT ELEVATION [None]
  - ELECTROCARDIOGRAM T WAVE INVERSION [None]
  - FLUID OVERLOAD [None]
  - GLAUCOMA [None]
  - HAEMATOCRIT DECREASED [None]
  - HAEMODIALYSIS [None]
  - HIGH DENSITY LIPOPROTEIN DECREASED [None]
  - HYPERTENSION [None]
  - HYPOXIA [None]
  - MYOCARDIAL INFARCTION [None]
  - MYOCARDIAL ISCHAEMIA [None]
  - OBESITY [None]
  - PERIPHERAL VASCULAR DISORDER [None]
  - PERITONITIS [None]
  - PNEUMONIA [None]
  - SINUS TACHYCARDIA [None]
  - VENTRICULAR HYPOKINESIA [None]
